FAERS Safety Report 8492638-X (Version None)
Quarter: 2012Q2

REPORT INFORMATION
  Report Type: 
  Country: None (occurrence: None)
  Receive Date: 20120627
  Receipt Date: 20120523
  Transmission Date: 20120825
  Serious: Yes (Other)
  Sender: FDA-Public Use
  Company Number: 2012AA000567

PATIENT
  Age: 74 Year
  Sex: Male

DRUGS (4)
  1. ALIFLUS (SERETIDE) [Concomitant]
  2. CALCIUM CHANNEL BLOCKERS (CALCIUM CHANNEL BLOCKERS) [Concomitant]
  3. PHARMALGEN APIS MELLIFERA (PHARMALGEN APIS MELLIFERA) [Suspect]
     Indication: HYPERSENSITIVITY
     Dosage: 10 MCG, WEEKLY, SUBCUTANEOUS
     Route: 058
     Dates: start: 20021105
  4. FUROSEMIDE (FUROSEMIDE) [Concomitant]

REACTIONS (2)
  - ANAPHYLACTIC REACTION [None]
  - ANGIOEDEMA [None]
